FAERS Safety Report 20861920 (Version 1)
Quarter: 2022Q2

REPORT INFORMATION
  Report Type: Spontaneous
  Country: US (occurrence: None)
  Receive Date: 20220520
  Receipt Date: 20220520
  Transmission Date: 20220721
  Serious: Yes (Life-Threatening, Hospitalization, Other)
  Sender: FDA-Public Use
  Company Number: None

PATIENT
  Age: 27 Year
  Sex: Female
  Weight: 58.5 kg

DRUGS (3)
  1. CYMBALTA [Suspect]
     Active Substance: DULOXETINE HYDROCHLORIDE
     Indication: Back pain
     Route: 048
     Dates: end: 20220423
  2. ADDERALL [Concomitant]
     Active Substance: AMPHETAMINE ASPARTATE\AMPHETAMINE SULFATE\DEXTROAMPHETAMINE SACCHARATE\DEXTROAMPHETAMINE SULFATE
  3. VITAMINS [Concomitant]
     Active Substance: VITAMINS

REACTIONS (18)
  - Malnutrition [None]
  - Dehydration [None]
  - Serotonin syndrome [None]
  - Tardive dyskinesia [None]
  - Migraine [None]
  - Hyperhidrosis [None]
  - Self-injurious ideation [None]
  - Gait inability [None]
  - Seizure [None]
  - Chills [None]
  - Hypoaesthesia [None]
  - Loss of consciousness [None]
  - Rash [None]
  - Burning sensation [None]
  - Pruritus [None]
  - Weight decreased [None]
  - Alopecia [None]
  - Pain [None]

NARRATIVE: CASE EVENT DATE: 20220418
